FAERS Safety Report 23686252 (Version 1)
Quarter: 2024Q1

REPORT INFORMATION
  Report Type: Report from Study
  Country: US (occurrence: US)
  Receive Date: 20240329
  Receipt Date: 20240329
  Transmission Date: 20240409
  Serious: Yes (Hospitalization, Other)
  Sender: FDA-Public Use
  Company Number: US-ABBVIE-5510652

PATIENT
  Age: 75 Year
  Sex: Female

DRUGS (1)
  1. HUMIRA [Suspect]
     Active Substance: ADALIMUMAB
     Indication: Psoriatic arthropathy
     Dosage: CITRATE FREE?STRENGTH:40MG
     Route: 058
     Dates: start: 20211118, end: 20231116

REACTIONS (4)
  - Volvulus [Recovered/Resolved]
  - Scar [Recovered/Resolved]
  - Surgery [Unknown]
  - Dysuria [Unknown]

NARRATIVE: CASE EVENT DATE: 20231119
